APPROVED DRUG PRODUCT: FAMOTIDINE
Active Ingredient: FAMOTIDINE
Strength: 10MG
Dosage Form/Route: TABLET;ORAL
Application: A076101 | Product #001
Applicant: SANDOZ INC
Approved: Oct 21, 2002 | RLD: No | RS: No | Type: DISCN